FAERS Safety Report 11082403 (Version 5)
Quarter: 2016Q2

REPORT INFORMATION
  Report Type: Spontaneous
  Country: US (occurrence: US)
  Receive Date: 20150501
  Receipt Date: 20160517
  Transmission Date: 20160815
  Serious: No
  Sender: FDA-Public Use
  Company Number: US-PFIZER INC-2015141478

PATIENT
  Sex: Female

DRUGS (2)
  1. LYRICA [Suspect]
     Active Substance: PREGABALIN
     Dosage: UNK
  2. LYRICA [Suspect]
     Active Substance: PREGABALIN
     Dosage: DOWN TO 2 CAPS AND SPACING THEM EVERY 56 HOURS APART

REACTIONS (5)
  - Withdrawal syndrome [Unknown]
  - Chills [Unknown]
  - Malaise [Unknown]
  - Screaming [Unknown]
  - Crying [Unknown]
